FAERS Safety Report 9449642 (Version 1)
Quarter: 2013Q3

REPORT INFORMATION
  Report Type: Spontaneous
  Country: US (occurrence: US)
  Receive Date: 20130809
  Receipt Date: 20130809
  Transmission Date: 20140515
  Serious: No
  Sender: FDA-Public Use
  Company Number: US-PFIZER INC-2013227668

PATIENT
  Age: 66 Year
  Sex: Male

DRUGS (1)
  1. SUTENT [Suspect]
     Indication: HEPATIC CANCER
     Dosage: 50 MG, UNK

REACTIONS (3)
  - Blood pressure increased [Unknown]
  - Urticaria [Unknown]
  - Off label use [Unknown]
